FAERS Safety Report 7459221-6 (Version None)
Quarter: 2011Q2

REPORT INFORMATION
  Report Type: 
  Country: None (occurrence: None)
  Receive Date: 20110505
  Receipt Date: 20110427
  Transmission Date: 20111010
  Serious: Yes (Other)
  Sender: FDA-Public Use
  Company Number: GB-TEVA-279291ISR

PATIENT
  Age: 67 Year
  Sex: Male

DRUGS (2)
  1. FIRDAPSE (AMIFAMAPRIDINE) [Interacting]
     Dosage: 60 MILLIGRAM;
     Route: 048
     Dates: start: 20100811, end: 20110112
  2. WARFARIN SODIUM [Suspect]
     Indication: DEEP VEIN THROMBOSIS
     Route: 048
     Dates: start: 20060101

REACTIONS (2)
  - COAGULATION TIME ABNORMAL [None]
  - DRUG INTERACTION [None]
